FAERS Safety Report 17344787 (Version 3)
Quarter: 2025Q2

REPORT INFORMATION
  Report Type: Report from Study
  Country: US (occurrence: US)
  Receive Date: 20200129
  Receipt Date: 20250401
  Transmission Date: 20250717
  Serious: Yes (Other)
  Sender: TAKEDA
  Company Number: US-SHIRE-US202003487

PATIENT
  Age: 56 Year
  Sex: Female

DRUGS (3)
  1. PARATHYROID HORMONE [Suspect]
     Active Substance: PARATHYROID HORMONE
     Indication: Hypoparathyroidism
     Dosage: 100 MILLIGRAM, QD
     Dates: start: 20181114
  2. PARATHYROID HORMONE [Suspect]
     Active Substance: PARATHYROID HORMONE
  3. PARATHYROID HORMONE [Suspect]
     Active Substance: PARATHYROID HORMONE

REACTIONS (5)
  - Hypoparathyroidism [Unknown]
  - Product dose omission issue [Recovering/Resolving]
  - Syringe issue [Unknown]
  - Device issue [Unknown]
  - Recalled product [Unknown]

NARRATIVE: CASE EVENT DATE: 20200125
